FAERS Safety Report 9499553 (Version 2)
Quarter: 2013Q4

REPORT INFORMATION
  Report Type: Spontaneous
  Country: IT (occurrence: IT)
  Receive Date: 20130905
  Receipt Date: 20131104
  Transmission Date: 20140711
  Serious: Yes (Hospitalization, Other)
  Sender: FDA-Public Use
  Company Number: IT-BRISTOL-MYERS SQUIBB COMPANY-19245323

PATIENT
  Age: 91 Year
  Sex: Male

DRUGS (8)
  1. COUMADIN TABS 5 MG [Suspect]
     Indication: ATRIAL FIBRILLATION
     Route: 048
     Dates: start: 20110801, end: 20130818
  2. ASCRIPTIN [Suspect]
     Indication: ATRIAL FIBRILLATION
     Route: 048
     Dates: start: 20130801, end: 20130818
  3. METFORMIN [Concomitant]
  4. TAREG [Concomitant]
     Dosage: TAB
  5. DILZENE [Concomitant]
     Dosage: TAB
  6. LANOXIN [Concomitant]
     Dosage: TAB
  7. LASIX [Concomitant]
     Dosage: TAB
  8. SIMVASTATIN [Concomitant]
     Dosage: TABS

REACTIONS (2)
  - Subdural haematoma [Recovering/Resolving]
  - Head injury [Unknown]
